FAERS Safety Report 7941199-X (Version None)
Quarter: 2011Q4

REPORT INFORMATION
  Report Type: 
  Country: None (occurrence: None)
  Receive Date: 20111128
  Receipt Date: 20111116
  Transmission Date: 20120403
  Serious: Yes (Hospitalization, Other)
  Sender: FDA-Public Use
  Company Number: US-BAYER-2011-019484

PATIENT
  Age: 22 Year
  Sex: Female
  Weight: 91 kg

DRUGS (3)
  1. PERCOCET [Concomitant]
  2. IBUPROFEN [Concomitant]
     Dosage: UNK UNK, PRN
  3. YAZ [Suspect]
     Indication: CONTRACEPTION
     Dosage: UNK
     Dates: start: 20080201, end: 20090101

REACTIONS (5)
  - CHOLECYSTECTOMY [None]
  - PAIN [None]
  - CHOLELITHIASIS [None]
  - DYSPNOEA [None]
  - NAUSEA [None]
